FAERS Safety Report 16332569 (Version 1)
Quarter: 2019Q2

REPORT INFORMATION
  Report Type: Spontaneous
  Country: US (occurrence: US)
  Receive Date: 20190520
  Receipt Date: 20190520
  Transmission Date: 20190711
  Serious: No
  Sender: FDA-Public Use
  Company Number: US-PFIZER INC-2019211785

PATIENT
  Age: 15 Year
  Sex: Female
  Weight: 68.27 kg

DRUGS (1)
  1. ADVIL LIQUI-GELS [Suspect]
     Active Substance: IBUPROFEN
     Indication: HEADACHE
     Dosage: 15 DF, UNK

REACTIONS (2)
  - Dyspepsia [Unknown]
  - Overdose [Unknown]

NARRATIVE: CASE EVENT DATE: 20190513
